FAERS Safety Report 13393470 (Version 1)
Quarter: 2017Q1

REPORT INFORMATION
  Report Type: Spontaneous
  Country: SE (occurrence: SE)
  Receive Date: 20170331
  Receipt Date: 20170331
  Transmission Date: 20170429
  Serious: Yes (Hospitalization)
  Sender: FDA-Public Use
  Company Number: SE-MUNDIPHARMA DS AND PHARMACOVIGILANCE-GBR-2017-0044492

PATIENT
  Age: 66 Year
  Sex: Male

DRUGS (14)
  1. DOLCONTIN [Suspect]
     Active Substance: MORPHINE
     Indication: PAIN
     Dosage: 110 MG, BID
     Route: 048
     Dates: start: 20141201, end: 20150901
  2. IMOVANE [Concomitant]
     Active Substance: ZOPICLONE
  3. SELOKENZOC [Concomitant]
     Active Substance: METOPROLOL SUCCINATE
  4. FURIX [Concomitant]
     Active Substance: FUROSEMIDE
  5. DENOSUMAB [Concomitant]
     Active Substance: DENOSUMAB
  6. LYRICA [Concomitant]
     Active Substance: PREGABALIN
  7. SOBRIL [Concomitant]
     Active Substance: OXAZEPAM
  8. ALVEDON [Concomitant]
     Active Substance: ACETAMINOPHEN
  9. FRAGMIN [Concomitant]
     Active Substance: DALTEPARIN SODIUM
  10. CAPECITABINE. [Concomitant]
     Active Substance: CAPECITABINE
     Dosage: UNK
     Dates: start: 20160813
  11. MORFIN                             /00036303/ [Concomitant]
     Active Substance: MORPHINE HYDROCHLORIDE
  12. SPIRONOLACTONE. [Concomitant]
     Active Substance: SPIRONOLACTONE
  13. ENALAPRIL [Concomitant]
     Active Substance: ENALAPRIL
  14. KALEORID [Concomitant]
     Active Substance: POTASSIUM CHLORIDE

REACTIONS (5)
  - Dizziness [Recovered/Resolved]
  - Muscular weakness [Recovered/Resolved]
  - Overdose [Recovered/Resolved]
  - Fatigue [Recovered/Resolved]
  - Somnolence [Recovered/Resolved]

NARRATIVE: CASE EVENT DATE: 20150901
